FAERS Safety Report 14614443 (Version 1)
Quarter: 2018Q1

REPORT INFORMATION
  Report Type: Spontaneous
  Country: US (occurrence: US)
  Receive Date: 20180308
  Receipt Date: 20180308
  Transmission Date: 20180509
  Serious: No
  Sender: FDA-Public Use
  Company Number: US-MISSION PHARMACAL COMPANY-2043324

PATIENT
  Age: 52 Year
  Sex: Male

DRUGS (2)
  1. POTASSIUM CITRATE. [Suspect]
     Active Substance: POTASSIUM CITRATE
     Indication: URETEROLITHIASIS
     Route: 065
  2. THIOLA [Concomitant]
     Active Substance: TIOPRONIN
     Route: 065
     Dates: start: 20161118

REACTIONS (3)
  - Oedematous kidney [Unknown]
  - Drug ineffective [Unknown]
  - Kidney enlargement [Not Recovered/Not Resolved]
